FAERS Safety Report 5389946-8 (Version None)
Quarter: 2007Q3

REPORT INFORMATION
  Report Type: 
  Country: None (occurrence: None)
  Receive Date: 20070716
  Receipt Date: 20070716
  Transmission Date: 20080115
  Serious: No
  Sender: FDA-Public Use
  Company Number: None

PATIENT
  Age: 38 Year
  Sex: Male

DRUGS (1)
  1. CHLORDIAZEPOXIDE [Suspect]
     Indication: ALCOHOL DETOXIFICATION
     Dosage: 50MG QID PO
     Route: 048
     Dates: start: 20070710, end: 20070710

REACTIONS (1)
  - RASH [None]
